FAERS Safety Report 9652999 (Version 1)
Quarter: 2013Q4

REPORT INFORMATION
  Report Type: Spontaneous
  Country: US (occurrence: US)
  Receive Date: 20131029
  Receipt Date: 20131029
  Transmission Date: 20140711
  Serious: No
  Sender: FDA-Public Use
  Company Number: US-BIOGENIDEC-2013BI078302

PATIENT
  Age: 51 Year
  Sex: Female

DRUGS (17)
  1. TECFIDERA [Suspect]
     Indication: MULTIPLE SCLEROSIS
     Route: 048
     Dates: start: 20130801, end: 20130807
  2. TECFIDERA [Suspect]
     Indication: MULTIPLE SCLEROSIS
     Route: 048
     Dates: start: 20130808
  3. HUMALOG [Concomitant]
  4. EFFEXOR [Concomitant]
  5. MIRTAZAPINE [Concomitant]
  6. RITALIN [Concomitant]
  7. ONDANSETRON [Concomitant]
  8. GEMFIBROZIL [Concomitant]
  9. ATENOLOL [Concomitant]
  10. METFORMIN [Concomitant]
  11. LISINOPRIL [Concomitant]
  12. SIMVASTATIN [Concomitant]
  13. LEVEMIR [Concomitant]
  14. GABAPENTIN [Concomitant]
  15. KERFLEX [Concomitant]
  16. LORTAB [Concomitant]
  17. BABY ASPIRIN [Concomitant]

REACTIONS (3)
  - Blood glucose increased [Unknown]
  - Abdominal pain upper [Not Recovered/Not Resolved]
  - Nausea [Unknown]
